FAERS Safety Report 5238632-3 (Version None)
Quarter: 2007Q1

REPORT INFORMATION
  Report Type: 
  Country: None (occurrence: None)
  Receive Date: 20070215
  Receipt Date: 20070206
  Transmission Date: 20070707
  Serious: Yes (Other)
  Sender: FDA-Public Use
  Company Number: US-ELI_LILLY_AND_COMPANY-USA050496172

PATIENT
  Age: 65 Year
  Sex: Male
  Weight: 102.49 kg

DRUGS (11)
  1. HYDROCHLOROTHIAZIDE [Concomitant]
  2. STRATTERA [Suspect]
     Indication: ATTENTION DEFICIT/HYPERACTIVITY DISORDER
     Dosage: 40 MG, 2/D
     Dates: start: 20050316, end: 20050420
  3. STRATTERA [Suspect]
     Dosage: 80 MG, DAILY (1/D)
     Dates: start: 20050309, end: 20050315
  4. RABEPRAZOLE SODIUM [Concomitant]
     Indication: GASTROOESOPHAGEAL REFLUX DISEASE
     Dosage: 20 MG, DAILY (1/D)
  5. POTASSIUM CHLORIDE [Concomitant]
     Dosage: 8 UNK, UNKNOWN
  6. METOPROLOL SUCCINATE [Concomitant]
     Indication: BLOOD PRESSURE
     Dosage: 100 MG, DAILY (1/D)
  7. GEMFIBROZIL [Concomitant]
     Indication: BLOOD TRIGLYCERIDES
     Dosage: 600 MG, 2/D
  8. LOPERAMIDE HCL [Concomitant]
     Indication: IRRITABLE BOWEL SYNDROME
     Dosage: UNK, UNKNOWN
  9. GABAPENTIN [Concomitant]
     Indication: HYPOAESTHESIA
     Dosage: 300 MG, 2/D
  10. OMEGA 3 [Concomitant]
     Dosage: UNK, UNKNOWN
  11. VITAMINS [Concomitant]
     Dosage: UNK, UNKNOWN

REACTIONS (41)
  - AGITATION [None]
  - ANXIETY [None]
  - BALANCE DISORDER [None]
  - BLOOD PRESSURE FLUCTUATION [None]
  - COMPUTERISED TOMOGRAM ABNORMAL [None]
  - CONTUSION [None]
  - CONVULSION [None]
  - CRYING [None]
  - DIPLOPIA [None]
  - DIZZINESS [None]
  - DRY MOUTH [None]
  - DYSPNOEA [None]
  - DYSURIA [None]
  - EYE IRRITATION [None]
  - EYE PRURITUS [None]
  - FALL [None]
  - FATIGUE [None]
  - FEELING ABNORMAL [None]
  - GAIT DISTURBANCE [None]
  - HEADACHE [None]
  - INSOMNIA [None]
  - INTERVERTEBRAL DISC PROTRUSION [None]
  - IRRITABILITY [None]
  - LOSS OF CONSCIOUSNESS [None]
  - LUMBAR SPINAL STENOSIS [None]
  - LYME DISEASE [None]
  - MEMORY IMPAIRMENT [None]
  - MOOD SWINGS [None]
  - MUSCLE CONTRACTURE [None]
  - NERVOUSNESS [None]
  - NIGHT BLINDNESS [None]
  - ORAL INTAKE REDUCED [None]
  - ORTHOSTATIC HYPOTENSION [None]
  - PAIN IN EXTREMITY [None]
  - POST-TRAUMATIC STRESS DISORDER [None]
  - SOMATISATION DISORDER [None]
  - SPINAL FRACTURE [None]
  - TINNITUS [None]
  - UNEVALUABLE EVENT [None]
  - VISION BLURRED [None]
  - WEIGHT INCREASED [None]
